FAERS Safety Report 7710329-7 (Version None)
Quarter: 2011Q3

REPORT INFORMATION
  Report Type: 
  Country: None (occurrence: None)
  Receive Date: 20110825
  Receipt Date: 20110823
  Transmission Date: 20111222
  Serious: Yes (Death, Hospitalization, Other)
  Sender: FDA-Public Use
  Company Number: US-AMGEN-USASP2011041103

PATIENT
  Age: 63 Year
  Sex: Female

DRUGS (1)
  1. NPLATE [Suspect]
     Indication: PRODUCT USED FOR UNKNOWN INDICATION

REACTIONS (3)
  - HOSPITALISATION [None]
  - DEATH [None]
  - RENAL DISORDER [None]
